FAERS Safety Report 14176186 (Version 1)
Quarter: 2017Q4

REPORT INFORMATION
  Report Type: Other
  Country: US (occurrence: US)
  Receive Date: 20171109
  Receipt Date: 20171109
  Transmission Date: 20180321
  Serious: Yes (Other)
  Sender: FDA-Public Use
  Company Number: US-THE PROACTIV LLC-2033727

PATIENT
  Age: 49 Year
  Sex: Female

DRUGS (4)
  1. PROACTIV RENEWING CLEANSER [Suspect]
     Active Substance: BENZOYL PEROXIDE
     Indication: ACNE
     Route: 061
     Dates: start: 20170515, end: 20170518
  2. PROACTIV SKIN PURIFYING MASK [Suspect]
     Active Substance: SULFUR
     Route: 061
     Dates: start: 20170515, end: 20170518
  3. PROACTIVPLUS REPAIRING CONCEALER (LIGHT/MEDIUM/TAN/DARK) [Suspect]
     Active Substance: SALICYLIC ACID
     Route: 061
     Dates: start: 20170515, end: 20170518
  4. PROACTIV REPAIRING TREATMENT [Suspect]
     Active Substance: BENZOYL PEROXIDE
     Route: 061
     Dates: start: 20170515, end: 20170518

REACTIONS (2)
  - Hypersensitivity [None]
  - Angioedema [Recovered/Resolved]

NARRATIVE: CASE EVENT DATE: 20170516
